FAERS Safety Report 8491946-6 (Version None)
Quarter: 2012Q3

REPORT INFORMATION
  Report Type: 
  Country: None (occurrence: None)
  Receive Date: 20120706
  Receipt Date: 20120627
  Transmission Date: 20120928
  Serious: Yes (Other)
  Sender: FDA-Public Use
  Company Number: JP-SANOFI-AVENTIS-2012SA047575

PATIENT

DRUGS (2)
  1. DOCETAXEL [Suspect]
     Indication: GASTRIC CANCER
     Dosage: ON DAY ONE
     Route: 042
  2. GIMERACIL/OTERACIL POTASSIUM/TEGAFUR [Suspect]
     Indication: GASTRIC CANCER
     Dosage: ON DAYS 1-14, EVERY THREE WEEKS
     Route: 048

REACTIONS (1)
  - TOXICITY TO VARIOUS AGENTS [None]
